FAERS Safety Report 8400241-2 (Version None)
Quarter: 2012Q2

REPORT INFORMATION
  Report Type: 
  Country: None (occurrence: None)
  Receive Date: 20120531
  Receipt Date: 20120524
  Transmission Date: 20120825
  Serious: Yes (Other)
  Sender: FDA-Public Use
  Company Number: US-BAYER-2012-053435

PATIENT

DRUGS (2)
  1. ALEVE (CAPLET) [Suspect]
     Route: 048
  2. ASPIRIN [Suspect]
     Dosage: BOTTLE COUNT 20S
     Route: 048

REACTIONS (1)
  - NEOPLASM MALIGNANT [None]
